FAERS Safety Report 5887133-8 (Version None)
Quarter: 2008Q3

REPORT INFORMATION
  Report Type: 
  Country: None (occurrence: None)
  Receive Date: 20080917
  Receipt Date: 20080908
  Transmission Date: 20090109
  Serious: Yes (Hospitalization)
  Sender: FDA-Public Use
  Company Number: CA-AMGEN-KDL304188

PATIENT
  Sex: Female
  Weight: 59 kg

DRUGS (10)
  1. KINERET [Suspect]
     Indication: DRUG USE FOR UNKNOWN INDICATION
     Route: 058
     Dates: start: 20080723
  2. METHOTREXATE [Concomitant]
     Route: 048
     Dates: start: 20070901
  3. PREDNISONE TAB [Concomitant]
     Route: 048
     Dates: start: 20071209, end: 20080601
  4. RABEPRAZOLE SODIUM [Concomitant]
  5. FERROUS SULFATE TAB [Concomitant]
  6. VITAMIN D [Concomitant]
  7. MULTI-VITAMINS [Concomitant]
  8. NAPROSYN [Concomitant]
  9. SOLU-MEDROL [Concomitant]
  10. ARTHROTEC [Concomitant]

REACTIONS (4)
  - INJECTION SITE ERYTHEMA [None]
  - INJECTION SITE HAEMATOMA [None]
  - INJECTION SITE REACTION [None]
  - PYREXIA [None]
